FAERS Safety Report 9441145 (Version 1)
Quarter: 2013Q3

REPORT INFORMATION
  Report Type: Spontaneous
  Country: CA (occurrence: CA)
  Receive Date: 20130805
  Receipt Date: 20130805
  Transmission Date: 20140515
  Serious: Yes (Disabling)
  Sender: FDA-Public Use
  Company Number: CA-TEVA-423124USA

PATIENT
  Age: 38 Year
  Sex: Male

DRUGS (4)
  1. FLUVOXAMINE [Suspect]
     Dosage: 250 MILLIGRAM DAILY;
     Route: 048
  2. CLONAZEPAM [Concomitant]
     Route: 065
  3. PARIET [Concomitant]
     Dosage: ENTERIC COATED
     Route: 065
  4. QUETIAPINE [Concomitant]

REACTIONS (7)
  - Anxiety [Unknown]
  - Condition aggravated [Unknown]
  - Depressed mood [Unknown]
  - Drug ineffective [Unknown]
  - Poor quality sleep [Unknown]
  - Product substitution issue [Unknown]
  - Somatic delusion [Unknown]
